FAERS Safety Report 25698954 (Version 1)
Quarter: 2025Q3

REPORT INFORMATION
  Report Type: Spontaneous
  Country: RU (occurrence: RU)
  Receive Date: 20250819
  Receipt Date: 20250819
  Transmission Date: 20251020
  Serious: Yes (Other)
  Sender: ROCHE
  Company Number: RU-ROCHE-10000361738

PATIENT
  Age: 78 Year

DRUGS (3)
  1. ATEZOLIZUMAB [Suspect]
     Active Substance: ATEZOLIZUMAB
     Indication: Malignant melanoma
     Dosage: (1,920 MG/DAY) DAILY
     Route: 042
     Dates: start: 202502
  2. VEMURAFENIB [Suspect]
     Active Substance: VEMURAFENIB
     Indication: Malignant melanoma
     Dosage: 720 MG ORALLY TWICE DAILY ON DAYS 22 TO 28 (RUN-IN PERIOD OF COMBINATION TARGETED THERAPY), FOLLOWED
     Route: 048
     Dates: start: 202502
  3. COBIMETINIB [Suspect]
     Active Substance: COBIMETINIB
     Indication: Malignant melanoma
     Dosage: 60 MG ORALLY ONCE DAILY ON DAYS 1 TO 21
     Route: 048
     Dates: start: 202502

REACTIONS (3)
  - Hepatotoxicity [Unknown]
  - Anaemia [Unknown]
  - Asthenia [Unknown]
